FAERS Safety Report 9438112 (Version 1)
Quarter: 2013Q3

REPORT INFORMATION
  Report Type: Spontaneous
  Country: US (occurrence: US)
  Receive Date: 20130802
  Receipt Date: 20130802
  Transmission Date: 20140515
  Serious: No
  Sender: FDA-Public Use
  Company Number: US-BRISTOL-MYERS SQUIBB COMPANY-16837676

PATIENT
  Age: 72 Year
  Sex: 0

DRUGS (21)
  1. COUMADIN [Suspect]
     Dosage: DOSE REDUCED TO 4.5 MG
  2. AMIODARONE [Concomitant]
  3. SYNTHROID [Concomitant]
  4. LIOTHYRONINE [Concomitant]
  5. ASPIRIN [Concomitant]
  6. TOPROL XL [Concomitant]
  7. DIGOXIN [Concomitant]
  8. LISINOPRIL [Concomitant]
  9. FUROSEMIDE [Concomitant]
  10. ZAROXOLYN [Concomitant]
  11. KLOR-CON [Concomitant]
  12. SIMVASTATIN [Concomitant]
  13. NITROGLYCERIN SPRAY [Concomitant]
  14. LORAZEPAM [Concomitant]
  15. TRAVATAN [Concomitant]
     Dosage: EYE DROPS
  16. COSOPT [Concomitant]
     Dosage: EYE DROPS
  17. VITAMIN D [Concomitant]
  18. VITAMIN B12 [Concomitant]
  19. OMEPRAZOLE [Concomitant]
  20. AMBIEN [Concomitant]
  21. TESTOSTERONE [Concomitant]
     Dosage: INJECTION

REACTIONS (1)
  - International normalised ratio fluctuation [Unknown]
